FAERS Safety Report 4569269-7 (Version None)
Quarter: 2005Q1

REPORT INFORMATION
  Report Type: 
  Country: None (occurrence: None)
  Receive Date: 20050203
  Receipt Date: 20050121
  Transmission Date: 20050727
  Serious: Yes (Other)
  Sender: FDA-Public Use
  Company Number: US-GLAXOSMITHKLINE-A0541678A

PATIENT
  Age: 24 Year
  Sex: Female
  Weight: 59 kg

DRUGS (1)
  1. VIVARIN TABLETS [Suspect]
     Route: 048

REACTIONS (1)
  - VAGINAL HAEMORRHAGE [None]
